FAERS Safety Report 8555490-X (Version None)
Quarter: 2012Q3

REPORT INFORMATION
  Report Type: 
  Country: None (occurrence: None)
  Receive Date: 20120731
  Receipt Date: 20120112
  Transmission Date: 20120928
  Serious: No
  Sender: FDA-Public Use
  Company Number: US-ASTRAZENECA-2011SE15660

PATIENT
  Age: 45 Year
  Sex: Male
  Weight: 90.3 kg

DRUGS (7)
  1. SEROQUEL [Suspect]
     Route: 048
     Dates: start: 20110101
  2. METHADON HYDROCHLORIDE TAB [Concomitant]
     Indication: PAIN
     Route: 048
     Dates: end: 20090101
  3. SEROQUEL [Suspect]
     Indication: BIPOLAR DISORDER
     Dosage: 600 TO 900 MG AT NIGHT
     Route: 048
     Dates: start: 20060101, end: 20090101
  4. SEROQUEL [Suspect]
     Indication: SCHIZOAFFECTIVE DISORDER
     Dosage: 600 TO 900 MG AT NIGHT
     Route: 048
     Dates: start: 20060101, end: 20090101
  5. PAXIL [Concomitant]
  6. SEROQUEL [Suspect]
     Route: 048
     Dates: start: 20110101
  7. CLONIDINE [Concomitant]

REACTIONS (8)
  - HANGOVER [None]
  - PANIC DISORDER [None]
  - FEELING ABNORMAL [None]
  - INITIAL INSOMNIA [None]
  - MENTAL DISORDER [None]
  - WEIGHT INCREASED [None]
  - DRUG EFFECT DECREASED [None]
  - DRUG DOSE OMISSION [None]
